FAERS Safety Report 10489721 (Version 1)
Quarter: 2014Q4

REPORT INFORMATION
  Report Type: Report from Study
  Country: IT (occurrence: IT)
  Receive Date: 20141002
  Receipt Date: 20141002
  Transmission Date: 20150528
  Serious: Yes (Other)
  Sender: FDA-Public Use
  Company Number: IT-AMGEN-ITASP2014074516

PATIENT
  Sex: Female

DRUGS (1)
  1. PROLIA [Suspect]
     Active Substance: DENOSUMAB
     Indication: OSTEOPOROSIS POSTMENOPAUSAL
     Route: 065

REACTIONS (8)
  - Hypertension [Unknown]
  - Colon cancer [Unknown]
  - Wrist fracture [Unknown]
  - Body height decreased [Unknown]
  - Activities of daily living impaired [Unknown]
  - Inadequate diet [Unknown]
  - Drug intolerance [Unknown]
  - Asthenia [Unknown]
